FAERS Safety Report 18267171 (Version 1)
Quarter: 2020Q3

REPORT INFORMATION
  Report Type: Spontaneous
  Country: FR (occurrence: FR)
  Receive Date: 20200915
  Receipt Date: 20200915
  Transmission Date: 20201103
  Serious: Yes (Other)
  Sender: FDA-Public Use
  Company Number: FR-EPIC PHARMA LLC-2020EPC00268

PATIENT
  Age: 44 Year
  Sex: Female

DRUGS (3)
  1. GABAPENTIN. [Suspect]
     Active Substance: GABAPENTIN
     Dosage: 1100 MG, 1X/DAY
     Route: 065
  2. KETAMINE [Concomitant]
     Active Substance: KETAMINE
     Dosage: EVERY 3 MONTHS
     Route: 065
  3. VENLAVAXINE [Concomitant]
     Indication: NEUROPATHY PERIPHERAL
     Route: 065

REACTIONS (1)
  - Platelet dysfunction [Recovered/Resolved]
